FAERS Safety Report 23543148 (Version 1)
Quarter: 2024Q1

REPORT INFORMATION
  Report Type: Spontaneous
  Country: ES (occurrence: ES)
  Receive Date: 20240220
  Receipt Date: 20240220
  Transmission Date: 20240410
  Serious: Yes (Other)
  Sender: FDA-Public Use
  Company Number: ES-CELLTRION INC.-2024ES003787

PATIENT

DRUGS (5)
  1. YUFLYMA [Suspect]
     Active Substance: ADALIMUMAB-AATY
     Indication: Crohn^s disease
     Dosage: 40 MG
     Route: 058
     Dates: start: 20230427
  2. AMOXICILINA /ACIDO CLAVULANICO [Concomitant]
     Indication: Urinary incontinence
     Dosage: UNK
     Dates: start: 20240103
  3. AMOXICILINA /ACIDO CLAVULANICO [Concomitant]
     Indication: Sinusitis
  4. TRAMADOL [Concomitant]
     Active Substance: TRAMADOL\TRAMADOL HYDROCHLORIDE
     Indication: Neck pain
     Dosage: UNK
     Route: 042
     Dates: start: 20231117, end: 20231117
  5. TORSEMIDE [Concomitant]
     Active Substance: TORSEMIDE
     Indication: Palpitations
     Dosage: 5 MG
     Dates: start: 20231219

REACTIONS (9)
  - Heart rate increased [Not Recovered/Not Resolved]
  - Psoriasis [Not Recovered/Not Resolved]
  - Alopecia [Not Recovered/Not Resolved]
  - Headache [Not Recovered/Not Resolved]
  - Abdominal pain [Not Recovered/Not Resolved]
  - Urinary tract infection [Not Recovered/Not Resolved]
  - Rash pruritic [Recovered/Resolved with Sequelae]
  - Blood pressure increased [Recovering/Resolving]
  - Abdominal distension [Not Recovered/Not Resolved]

NARRATIVE: CASE EVENT DATE: 20231120
